FAERS Safety Report 25973977 (Version 1)
Quarter: 2025Q4

REPORT INFORMATION
  Report Type: Spontaneous
  Country: US (occurrence: None)
  Receive Date: 20251028
  Receipt Date: 20251028
  Transmission Date: 20260117
  Serious: Yes (Hospitalization)
  Sender: FDA-CTU
  Company Number: None

PATIENT
  Age: 72 Year
  Sex: Male

DRUGS (9)
  1. REPATHA [Suspect]
     Active Substance: EVOLOCUMAB
     Indication: Cardiovascular event prophylaxis
     Dosage: 140 MG/ML EVERY 14 DAYS SUBCUTANEOUS?
     Route: 058
     Dates: start: 20230712
  2. REPATHA [Suspect]
     Active Substance: EVOLOCUMAB
     Indication: Blood cholesterol increased
  3. WARFARIN SOD 3MG TABLETS (TAN) [Concomitant]
  4. AMLODIPINE BESYLATE [Concomitant]
     Active Substance: AMLODIPINE BESYLATE
  5. CELECOXIB 100MG CAPSULES [Concomitant]
  6. FLONASE 50MCG NAS SPRAY RX (120SPR) [Concomitant]
  7. METOPROLOL SUCCINATE [Concomitant]
     Active Substance: METOPROLOL SUCCINATE
  8. PREGABALIN [Concomitant]
     Active Substance: PREGABALIN
  9. VENTOLIN HFA INH W/DOS CTR 200PUFFS [Concomitant]

REACTIONS (2)
  - Surgery [None]
  - Intentional dose omission [None]

NARRATIVE: CASE EVENT DATE: 20250928
